FAERS Safety Report 10654160 (Version 1)
Quarter: 2014Q4

REPORT INFORMATION
  Report Type: Spontaneous
  Country: US (occurrence: None)
  Receive Date: 20141215
  Receipt Date: 20141215
  Transmission Date: 20150529
  Serious: Yes (Other)
  Sender: FDA-Public Use
  Company Number: None

PATIENT
  Age: 69 Year
  Sex: Male
  Weight: 86.18 kg

DRUGS (2)
  1. LOVASTATIN CONTAMINANT [Suspect]
     Active Substance: LOVASTATIN
  2. RED YEAST RICE [Suspect]
     Active Substance: DIETARY SUPPLEMENT
     Indication: BLOOD CHOLESTEROL INCREASED
     Dates: start: 20140715, end: 20141212

REACTIONS (2)
  - Drug administration error [None]
  - Myalgia [None]

NARRATIVE: CASE EVENT DATE: 20141212
